FAERS Safety Report 8922153 (Version 1)
Quarter: 2012Q4

REPORT INFORMATION
  Report Type: 
  Country: US (occurrence: US)
  Receive Date: 20121123
  Receipt Date: 20121123
  Transmission Date: 20130627
  Serious: No
  Sender: FDA-Public Use
  Company Number: US-009507513-2012SP033956

PATIENT
  Sex: Female
  Weight: 41.72 kg

DRUGS (9)
  1. CLARITIN REDITABS [Suspect]
     Indication: INFLUENZA
     Dosage: 5 mg, q12h
     Route: 048
     Dates: start: 201205
  2. CLARITIN REDITABS [Suspect]
     Indication: SECRETION DISCHARGE
  3. CLARITIN REDITABS [Suspect]
     Indication: MEDICAL OBSERVATION
  4. CLARITIN REDITABS [Suspect]
     Indication: PARANASAL SINUS HYPERSECRETION
  5. HALLS ZINC DEFENSE [Concomitant]
     Indication: PRODUCT USED FOR UNKNOWN INDICATION
     Dosage: UNK UNK, Unknown
  6. MUCINEX [Concomitant]
     Indication: PRODUCT USED FOR UNKNOWN INDICATION
     Dosage: UNK UNK, Unknown
  7. ATENOLOL [Concomitant]
     Indication: HYPERTENSION
     Dosage: UNK, Unknown
  8. DIAZEPAM [Concomitant]
     Indication: PRODUCT USED FOR UNKNOWN INDICATION
     Dosage: UNK, Unknown
  9. VITAMINS (UNSPECIFIED) [Concomitant]
     Indication: PRODUCT USED FOR UNKNOWN INDICATION
     Dosage: UNK, Unknown

REACTIONS (1)
  - Drug ineffective for unapproved indication [Unknown]
